FAERS Safety Report 20684589 (Version 5)
Quarter: 2022Q4

REPORT INFORMATION
  Report Type: Spontaneous
  Country: US (occurrence: US)
  Receive Date: 20220407
  Receipt Date: 20221216
  Transmission Date: 20230113
  Serious: Yes (Hospitalization, Other)
  Sender: FDA-Public Use
  Company Number: US-THERATECHNOLOGIES INC.-2022-THE-IBA-000060

PATIENT

DRUGS (10)
  1. TROGARZO [Suspect]
     Active Substance: IBALIZUMAB-UIYK
     Indication: HIV infection
     Dosage: 2000 MG, LOADING DOSE
     Route: 042
     Dates: start: 20220324, end: 20220324
  2. TROGARZO [Suspect]
     Active Substance: IBALIZUMAB-UIYK
     Dosage: 800 MG EVERY 14 DAYS
     Route: 042
  3. TROGARZO [Suspect]
     Active Substance: IBALIZUMAB-UIYK
     Dosage: 2000 MG, LOADING DOSE
     Route: 042
     Dates: start: 202204, end: 202204
  4. TROGARZO [Suspect]
     Active Substance: IBALIZUMAB-UIYK
     Dosage: MAINTENANCE DOSE
     Route: 042
  5. TIVICAY [Concomitant]
     Active Substance: DOLUTEGRAVIR SODIUM
     Indication: HIV infection
     Dosage: 50 MG, BID
     Route: 048
  6. TIVICAY [Concomitant]
     Active Substance: DOLUTEGRAVIR SODIUM
     Indication: Acquired immunodeficiency syndrome
  7. RUKOBIA [Concomitant]
     Active Substance: FOSTEMSAVIR TROMETHAMINE
     Indication: HIV infection
     Dosage: 600 MG, BID
     Route: 048
  8. RUKOBIA [Concomitant]
     Active Substance: FOSTEMSAVIR TROMETHAMINE
     Indication: Acquired immunodeficiency syndrome
  9. ATOVAQUONE [Concomitant]
     Active Substance: ATOVAQUONE
     Indication: Acquired immunodeficiency syndrome
     Dosage: 1500 MG, QD
     Route: 048
  10. VALACYCLOVIR [Concomitant]
     Active Substance: VALACYCLOVIR HYDROCHLORIDE
     Indication: Herpes simplex
     Dosage: 1 G, QD

REACTIONS (11)
  - Immune reconstitution inflammatory syndrome [Unknown]
  - Disseminated mycobacterium avium complex infection [Unknown]
  - Pneumocystis jirovecii pneumonia [Unknown]
  - Headache [Unknown]
  - Chest pain [Unknown]
  - Swelling [Unknown]
  - Pain [Unknown]
  - Gastroenteritis rotavirus [Unknown]
  - Abdominal pain [Unknown]
  - Asthenia [Unknown]
  - Product dose omission issue [Unknown]

NARRATIVE: CASE EVENT DATE: 20220324
